FAERS Safety Report 16698961 (Version 1)
Quarter: 2019Q3

REPORT INFORMATION
  Report Type: Spontaneous
  Country: US (occurrence: US)
  Receive Date: 20190813
  Receipt Date: 20190813
  Transmission Date: 20191004
  Serious: No
  Sender: FDA-Public Use
  Company Number: US-PERRIGO-18US012507

PATIENT
  Age: 77 Year
  Sex: Male
  Weight: 111.11 kg

DRUGS (4)
  1. LORATADINE. [Suspect]
     Active Substance: LORATADINE
     Indication: HYPOAESTHESIA
  2. LORATADINE. [Suspect]
     Active Substance: LORATADINE
     Indication: DYSPNOEA
  3. LORATADINE. [Suspect]
     Active Substance: LORATADINE
     Indication: HYPERSENSITIVITY
     Dosage: 10 MG, QD
     Route: 048
     Dates: start: 20181030, end: 20181031
  4. LORATADINE. [Suspect]
     Active Substance: LORATADINE
     Indication: INSOMNIA

REACTIONS (2)
  - Off label use [Unknown]
  - Condition aggravated [Unknown]

NARRATIVE: CASE EVENT DATE: 20181030
